FAERS Safety Report 8223947-7 (Version None)
Quarter: 2012Q1

REPORT INFORMATION
  Report Type: 
  Country: None (occurrence: None)
  Receive Date: 20120321
  Receipt Date: 20120313
  Transmission Date: 20120608
  Serious: Yes (Other)
  Sender: FDA-Public Use
  Company Number: US-UCBSA-030292

PATIENT
  Age: 36 Year
  Sex: Female

DRUGS (4)
  1. TYLENOL-ES [Concomitant]
     Indication: HEADACHE
  2. MULTI-VITAMINS [Concomitant]
     Indication: PREGNANCY
     Dates: start: 20070801
  3. KEPPRA [Suspect]
     Indication: BRAIN NEOPLASM MALIGNANT
     Dates: start: 20080201
  4. FOLIC ACID [Concomitant]
     Indication: PREGNANCY
     Dates: start: 20080801

REACTIONS (2)
  - PREMATURE DELIVERY [None]
  - MATERNAL EXPOSURE DURING PREGNANCY [None]
